FAERS Safety Report 8118312-7 (Version None)
Quarter: 2012Q1

REPORT INFORMATION
  Report Type: 
  Country: None (occurrence: None)
  Receive Date: 20120207
  Receipt Date: 20120205
  Transmission Date: 20120608
  Serious: Yes (Other)
  Sender: FDA-Public Use
  Company Number: IL-PFIZER INC-2012030945

PATIENT
  Age: 38 Year
  Sex: Female

DRUGS (1)
  1. DEPO-PROVERA [Suspect]
     Indication: CONTRACEPTION
     Route: 050

REACTIONS (3)
  - ABORTION [None]
  - DRUG INEFFECTIVE [None]
  - UNINTENDED PREGNANCY [None]
